FAERS Safety Report 6162440-2 (Version None)
Quarter: 2009Q2

REPORT INFORMATION
  Report Type: 
  Country: None (occurrence: None)
  Receive Date: 20090421
  Receipt Date: 20090417
  Transmission Date: 20091009
  Serious: Yes (Hospitalization)
  Sender: FDA-Public Use
  Company Number: US-PFIZER INC-2009200234

PATIENT
  Age: 57 Year
  Sex: Male

DRUGS (3)
  1. VORICONAZOLE [Suspect]
     Dosage: 200 MG, 2X/DAY
     Route: 048
  2. TOBRAMYCIN SULFATE [Concomitant]
  3. MEROPENEM [Concomitant]

REACTIONS (6)
  - DEAFNESS [None]
  - NEUTROPENIA [None]
  - OTITIS EXTERNA [None]
  - OTORRHOEA [None]
  - PATHOGEN RESISTANCE [None]
  - TYMPANIC MEMBRANE PERFORATION [None]
